FAERS Safety Report 10053949 (Version 5)
Quarter: 2014Q4

REPORT INFORMATION
  Report Type: Spontaneous
  Country: US (occurrence: US)
  Receive Date: 20140402
  Receipt Date: 20141117
  Transmission Date: 20150528
  Serious: No
  Sender: FDA-Public Use
  Company Number: US-AMGEN-USASP2014017223

PATIENT
  Age: 55 Year
  Sex: Female
  Weight: 90.24 kg

DRUGS (2)
  1. ENBREL [Suspect]
     Active Substance: ETANERCEPT
     Indication: RHEUMATOID ARTHRITIS
     Dosage: 50 MG, QWK
     Route: 058
     Dates: start: 201311
  2. ENBREL [Suspect]
     Active Substance: ETANERCEPT
     Indication: PSORIATIC ARTHROPATHY

REACTIONS (18)
  - Headache [Recovered/Resolved]
  - Productive cough [Recovered/Resolved]
  - Nodule [Recovered/Resolved]
  - Bronchitis [Recovered/Resolved]
  - Nasal discharge discolouration [Recovered/Resolved]
  - Cough [Recovered/Resolved]
  - Foot deformity [Recovered/Resolved]
  - Arthralgia [Recovered/Resolved]
  - Skin disorder [Recovered/Resolved]
  - Rash papular [Recovered/Resolved]
  - Contusion [Recovered/Resolved]
  - Malaise [Recovered/Resolved]
  - Pyrexia [Recovered/Resolved]
  - Pruritus [Recovered/Resolved]
  - Poor quality sleep [Recovered/Resolved]
  - Erythema [Recovered/Resolved]
  - Injection site pain [Recovered/Resolved]
  - Nasopharyngitis [Recovered/Resolved]
